FAERS Safety Report 16284296 (Version 3)
Quarter: 2019Q2

REPORT INFORMATION
  Report Type: Report from Study
  Country: None (occurrence: US)
  Receive Date: 20190508
  Receipt Date: 20190624
  Transmission Date: 20190711
  Serious: Yes (Hospitalization, Other)
  Sender: FDA-Public Use
  Company Number: US-ABBVIE-19S-163-2771069-00

PATIENT
  Age: 65 Year
  Sex: Male
  Weight: 95.34 kg

DRUGS (13)
  1. ZOFRAN [Concomitant]
     Active Substance: ONDANSETRON HYDROCHLORIDE
     Indication: NAUSEA
     Dosage: AS REQUIRED
  2. CARBIDOPA LEVODOPA [Concomitant]
     Active Substance: CARBIDOPA\LEVODOPA
     Indication: PARKINSON^S DISEASE
  3. CREON [Suspect]
     Active Substance: PANCRELIPASE AMYLASE\PANCRELIPASE LIPASE\PANCRELIPASE PROTEASE
     Indication: PANCREATIC ENZYME ABNORMALITY
     Dosage: 2 TABLETS WITH FOOD AND 1 TABLET WITH SNACKS
     Route: 048
  4. FOLIC ACID. [Concomitant]
     Active Substance: FOLIC ACID
     Indication: PRODUCT USED FOR UNKNOWN INDICATION
  5. METHOTREXATE. [Concomitant]
     Active Substance: METHOTREXATE
     Indication: ANKYLOSING SPONDYLITIS
  6. ELIQUIS [Concomitant]
     Active Substance: APIXABAN
     Indication: ATRIAL FIBRILLATION
  7. CREON [Suspect]
     Active Substance: PANCRELIPASE AMYLASE\PANCRELIPASE LIPASE\PANCRELIPASE PROTEASE
     Dosage: 3 BEFORE EVERY MEAL AND 2 BEFORE SNACK
     Route: 048
     Dates: start: 201904
  8. VITAMIN D3 [Concomitant]
     Active Substance: CHOLECALCIFEROL
     Indication: SUPPLEMENTATION THERAPY
  9. MORPHINE [Concomitant]
     Active Substance: MORPHINE
     Indication: PAIN
  10. OXYCODONE [Concomitant]
     Active Substance: OXYCODONE
     Indication: PRODUCT USED FOR UNKNOWN INDICATION
     Dosage: AS NEEDED
  11. MAGNESIUM OXIDE. [Concomitant]
     Active Substance: MAGNESIUM OXIDE
     Indication: SUPPLEMENTATION THERAPY
  12. HUMIRA [Suspect]
     Active Substance: ADALIMUMAB
     Indication: ANKYLOSING SPONDYLITIS
     Route: 058
     Dates: start: 2017
  13. DEXILANT [Concomitant]
     Active Substance: DEXLANSOPRAZOLE
     Indication: DYSPEPSIA

REACTIONS (49)
  - Dysuria [Recovered/Resolved]
  - Paraesthesia [Unknown]
  - Hypercholesterolaemia [Unknown]
  - Obesity [Unknown]
  - Anaemia [Unknown]
  - Pain in extremity [Not Recovered/Not Resolved]
  - Ankylosing spondylitis [Recovered/Resolved]
  - Chronic kidney disease [Unknown]
  - Vertigo [Unknown]
  - Renal failure [Unknown]
  - Back pain [Not Recovered/Not Resolved]
  - Prostatomegaly [Recovered/Resolved]
  - Inguinal hernia repair [Unknown]
  - Depression [Unknown]
  - Anal fissure [Unknown]
  - Impaired gastric emptying [Unknown]
  - Arthralgia [Unknown]
  - Dysphagia [Not Recovered/Not Resolved]
  - Ankylosing spondylitis [Not Recovered/Not Resolved]
  - Arthritis [Not Recovered/Not Resolved]
  - Haemorrhage [Not Recovered/Not Resolved]
  - Haemorrhoids [Unknown]
  - Thirst [Unknown]
  - Hyperuricaemia [Unknown]
  - Pain [Unknown]
  - Parkinson^s disease [Not Recovered/Not Resolved]
  - Atrial fibrillation [Not Recovered/Not Resolved]
  - Pancreatitis [Not Recovered/Not Resolved]
  - Stomatitis [Unknown]
  - Cardiac valve disease [Unknown]
  - Pain in extremity [Not Recovered/Not Resolved]
  - Drug abuse [Unknown]
  - Abdominal pain [Not Recovered/Not Resolved]
  - Gastrooesophageal reflux disease [Not Recovered/Not Resolved]
  - Appendicitis [Unknown]
  - Testicular pain [Unknown]
  - Spinal pain [Not Recovered/Not Resolved]
  - Spinal operation [Unknown]
  - Small intestinal obstruction [Unknown]
  - Cholecystectomy [Unknown]
  - Biliary tract disorder [Unknown]
  - Large intestine polyp [Unknown]
  - Pancreatic duct dilatation [Unknown]
  - Bile duct stone [Recovered/Resolved]
  - Visual impairment [Unknown]
  - Hot flush [Unknown]
  - Hypogonadism [Unknown]
  - Essential hypertension [Unknown]
  - Osteoporosis [Unknown]

NARRATIVE: CASE EVENT DATE: 20130205
